FAERS Safety Report 22650213 (Version 4)
Quarter: 2023Q4

REPORT INFORMATION
  Report Type: Spontaneous
  Country: US (occurrence: US)
  Receive Date: 20230628
  Receipt Date: 20231107
  Transmission Date: 20240110
  Serious: No
  Sender: FDA-Public Use
  Company Number: US-LUNDBECK-DKLU3063011

PATIENT
  Age: 30 Year
  Sex: Female

DRUGS (3)
  1. NORTHERA [Suspect]
     Active Substance: DROXIDOPA
     Indication: Autonomic neuropathy
     Route: 048
     Dates: start: 202301
  2. NORTHERA [Suspect]
     Active Substance: DROXIDOPA
     Indication: Postural orthostatic tachycardia syndrome
  3. NORTHERA [Suspect]
     Active Substance: DROXIDOPA
     Indication: Syncope

REACTIONS (4)
  - Chest pain [Unknown]
  - Chest discomfort [Unknown]
  - Alopecia [Unknown]
  - Poor quality product administered [Unknown]

NARRATIVE: CASE EVENT DATE: 20230621
